FAERS Safety Report 16350729 (Version 2)
Quarter: 2019Q2

REPORT INFORMATION
  Report Type: Spontaneous
  Country: JP (occurrence: JP)
  Receive Date: 20190524
  Receipt Date: 20190531
  Transmission Date: 20190711
  Serious: Yes (Hospitalization, Other)
  Sender: FDA-Public Use
  Company Number: JP-BRISTOL-MYERS SQUIBB COMPANY-BMS-2019-050112

PATIENT
  Age: 75 Year
  Sex: Male

DRUGS (2)
  1. YERVOY [Suspect]
     Active Substance: IPILIMUMAB
     Indication: METASTATIC RENAL CELL CARCINOMA
     Dosage: UNK
     Route: 041
  2. OPDIVO [Suspect]
     Active Substance: NIVOLUMAB
     Indication: METASTATIC RENAL CELL CARCINOMA
     Dosage: UNK
     Route: 041

REACTIONS (11)
  - Chronic gastritis [Unknown]
  - Metastases to lung [Unknown]
  - Sepsis [Unknown]
  - Rash [Recovering/Resolving]
  - Metastases to bone [Unknown]
  - Erythema [Recovering/Resolving]
  - Brain oedema [Unknown]
  - Hepatic function abnormal [Unknown]
  - Metastases to central nervous system [Unknown]
  - Escherichia bacteraemia [Unknown]
  - Diarrhoea [Unknown]
